FAERS Safety Report 14951624 (Version 1)
Quarter: 2018Q2

REPORT INFORMATION
  Report Type: Spontaneous
  Country: IN (occurrence: IN)
  Receive Date: 20180530
  Receipt Date: 20180530
  Transmission Date: 20180711
  Serious: Yes (Other)
  Sender: FDA-Public Use
  Company Number: IN-PFIZER INC-2018217537

PATIENT
  Age: 54 Year
  Sex: Female

DRUGS (1)
  1. SUNITINIB MALATE. [Suspect]
     Active Substance: SUNITINIB MALATE
     Dosage: 50 MG, CYCLIC (2WEEK ON/ 1 WEEK OFF)

REACTIONS (2)
  - Blindness [Unknown]
  - Alopecia [Unknown]
